FAERS Safety Report 10200773 (Version 1)
Quarter: 2014Q2

REPORT INFORMATION
  Report Type: Spontaneous
  Country: CN (occurrence: CN)
  Receive Date: 20140528
  Receipt Date: 20140528
  Transmission Date: 20141212
  Serious: Yes (Other)
  Sender: FDA-Public Use
  Company Number: CN-ROCHE-1408562

PATIENT
  Age: 39 Year
  Sex: Male
  Weight: 89 kg

DRUGS (1)
  1. ROCEPHIN [Suspect]
     Indication: INFECTION PROPHYLAXIS
     Route: 041
     Dates: start: 20130702, end: 20130702

REACTIONS (1)
  - Feeling drunk [Recovered/Resolved]
